FAERS Safety Report 9275518 (Version 1)
Quarter: 2013Q2

REPORT INFORMATION
  Report Type: Spontaneous
  Country: CN (occurrence: None)
  Receive Date: 20130430
  Receipt Date: 20130430
  Transmission Date: 20140414
  Serious: Yes (Hospitalization)
  Sender: FDA-Public Use
  Company Number: INT_00244_2013

PATIENT
  Age: 40 Year
  Sex: Female
  Weight: 41 kg

DRUGS (1)
  1. CEFTRIAXONE (CEFTRIAXONE) [Suspect]
     Indication: UPPER RESPIRATORY TRACT INFECTION
     Dosage: (2 G BID INTRAVENOUS (1 WEEK 1 DAY) (NOT OTHERWISE SPECIFIED))
     Route: 042

REACTIONS (2)
  - Calculus ureteric [None]
  - Renal failure acute [None]
